FAERS Safety Report 5493113-7 (Version None)
Quarter: 2007Q4

REPORT INFORMATION
  Report Type: 
  Country: None (occurrence: None)
  Receive Date: 20071019
  Receipt Date: 20071005
  Transmission Date: 20080405
  Serious: Yes (Hospitalization)
  Sender: FDA-Public Use
  Company Number: 2007S1009445

PATIENT
  Age: 12 Year

DRUGS (7)
  1. METHOTREXATE [Suspect]
     Indication: DIFFUSE LARGE B-CELL LYMPHOMA
     Dosage: 4260 MG; INTRAVENOUS
     Route: 042
     Dates: start: 20070827, end: 20070827
  2. ENDOXAN ASTA (CYCLOPHOSPHAMIDE) [Suspect]
     Dosage: 285 MG; DAILY; INTRAVENOUS
     Route: 042
     Dates: start: 20070827, end: 20070828
  3. CARBOXYPEPTIDASE G2 [Concomitant]
  4. ELVORINE [Concomitant]
  5. BACTRIM [Concomitant]
  6. ZOFRAN [Concomitant]
  7. DEXAMETHASONE 0.5MG TAB [Concomitant]

REACTIONS (5)
  - ALANINE AMINOTRANSFERASE INCREASED [None]
  - NEUTROPENIA [None]
  - OVERDOSE [None]
  - RENAL FAILURE [None]
  - TRANSAMINASES INCREASED [None]
